FAERS Safety Report 5474712-5 (Version None)
Quarter: 2007Q3

REPORT INFORMATION
  Report Type: 
  Country: None (occurrence: None)
  Receive Date: 20070927
  Receipt Date: 20070927
  Transmission Date: 20080115
  Serious: Yes (Other)
  Sender: FDA-Public Use
  Company Number: None

PATIENT
  Sex: Female

DRUGS (1)
  1. ZOLADEX [Suspect]
     Indication: ENDOMETRIOSIS
     Dosage: 3.6MG ,OMTHLY SQ
     Route: 058
     Dates: start: 20070322, end: 20070726

REACTIONS (3)
  - HEADACHE [None]
  - HYPERTENSION [None]
  - VISION BLURRED [None]
